FAERS Safety Report 6859196-4 (Version None)
Quarter: 2010Q3

REPORT INFORMATION
  Report Type: 
  Country: None (occurrence: None)
  Receive Date: 20100719
  Receipt Date: 20080219
  Transmission Date: 20110219
  Serious: No
  Sender: FDA-Public Use
  Company Number: US-PFIZER INC-2008017593

PATIENT
  Sex: Male
  Weight: 84.5 kg

DRUGS (9)
  1. CHANTIX [Suspect]
     Indication: SMOKING CESSATION THERAPY
     Dates: start: 20080216
  2. TOPROL-XL [Concomitant]
  3. COZAAR [Concomitant]
  4. SULAR [Concomitant]
  5. AMARYL [Concomitant]
  6. ZOCOR [Concomitant]
  7. LYRICA [Concomitant]
  8. HYDROCHLOROTHIAZIDE [Concomitant]
  9. ACETYLSALICYLIC ACID [Concomitant]

REACTIONS (3)
  - INCORRECT DOSE ADMINISTERED [None]
  - NAUSEA [None]
  - VOMITING [None]
